FAERS Safety Report 9301868 (Version 1)
Quarter: 2013Q2

REPORT INFORMATION
  Report Type: Spontaneous
  Country: AT (occurrence: AT)
  Receive Date: 20130521
  Receipt Date: 20130521
  Transmission Date: 20140414
  Serious: Yes (Hospitalization)
  Sender: FDA-Public Use
  Company Number: AT-009507513-1305AUT011926

PATIENT
  Sex: Female

DRUGS (1)
  1. AERIUS [Suspect]
     Route: 048

REACTIONS (1)
  - Hypoglycaemia [Unknown]
